FAERS Safety Report 15525073 (Version 2)
Quarter: 2018Q4

REPORT INFORMATION
  Report Type: Report from Study
  Country: US (occurrence: US)
  Receive Date: 20181019
  Receipt Date: 20181218
  Transmission Date: 20190205
  Serious: Yes (Other)
  Sender: FDA-Public Use
  Company Number: US-GILEAD-2018-0368978

PATIENT
  Age: 56 Year
  Sex: Male
  Weight: 82.36 kg

DRUGS (1)
  1. RANOLAZINE. [Suspect]
     Active Substance: RANOLAZINE
     Indication: LONG QT SYNDROME CONGENITAL
     Dosage: 500 MG, BID
     Route: 065
     Dates: start: 20140924, end: 20150129

REACTIONS (1)
  - Ventricular arrhythmia [Recovered/Resolved]

NARRATIVE: CASE EVENT DATE: 20141215
